FAERS Safety Report 4328999-2 (Version None)
Quarter: 2004Q1

REPORT INFORMATION
  Report Type: 
  Country: None (occurrence: None)
  Receive Date: 20040329
  Receipt Date: 20040123
  Transmission Date: 20041129
  Serious: No
  Sender: FDA-Public Use
  Company Number: 04P-163-0248150-00

PATIENT
  Age: 70 Year
  Sex: Female
  Weight: 79.3795 kg

DRUGS (10)
  1. HUMIRA [Suspect]
     Indication: RHEUMATOID ARTHRITIS
     Dosage: 40 MG, 1 IN 2 WK, SUBCUTANEOUS
     Route: 058
     Dates: start: 20030904
  2. ALBUTEROL [Concomitant]
  3. LEVOTHYROXINE SODIUM [Concomitant]
  4. METHOTREXATE [Concomitant]
  5. PREDNISONE [Concomitant]
  6. FOLIC ACID [Concomitant]
  7. SINGULAIR [Concomitant]
  8. RAMIPRIL [Concomitant]
  9. LANSOPRAZOLE [Concomitant]
  10. MELOXICAM [Concomitant]

REACTIONS (1)
  - PNEUMONIA [None]
